FAERS Safety Report 6988354-3 (Version None)
Quarter: 2010Q3

REPORT INFORMATION
  Report Type: 
  Country: None (occurrence: None)
  Receive Date: 20100914
  Receipt Date: 20100903
  Transmission Date: 20110219
  Serious: Yes (Disabling)
  Sender: FDA-Public Use
  Company Number: 105668

PATIENT
  Age: 45 Year
  Sex: Female

DRUGS (1)
  1. PAMIDRONATE DISODIUM FOR INJ. 30MG-BEDFORD LABS, INC. [Suspect]
     Indication: BREAST CANCER

REACTIONS (9)
  - BENIGN INTRACRANIAL HYPERTENSION [None]
  - DIPLOPIA [None]
  - HEADACHE [None]
  - HYPERAEMIA [None]
  - NAUSEA [None]
  - OPTIC DISC HAEMORRHAGE [None]
  - PAPILLOEDEMA [None]
  - VISION BLURRED [None]
  - VISUAL FIELD DEFECT [None]
